FAERS Safety Report 9528835 (Version 1)
Quarter: 2013Q3

REPORT INFORMATION
  Report Type: Spontaneous
  Country: US (occurrence: US)
  Receive Date: 20130917
  Receipt Date: 20130917
  Transmission Date: 20140515
  Serious: No
  Sender: FDA-Public Use
  Company Number: US-BANPHARM-20120187

PATIENT
  Age: 54 Year
  Sex: Male
  Weight: 84.09 kg

DRUGS (1)
  1. ZYRTEC LIQUID GELS 10 MG [Suspect]
     Indication: HYPERSENSITIVITY
     Dosage: 2 DF WITHIN 24 HRS,
     Route: 048
     Dates: start: 20120919

REACTIONS (2)
  - Drug ineffective [Not Recovered/Not Resolved]
  - Inappropriate schedule of drug administration [Unknown]
